FAERS Safety Report 13910474 (Version 1)
Quarter: 2017Q3

REPORT INFORMATION
  Report Type: Spontaneous
  Country: US (occurrence: US)
  Receive Date: 20170828
  Receipt Date: 20170828
  Transmission Date: 20171127
  Serious: No
  Sender: FDA-Public Use
  Company Number: US-ALLERGAN-1682539US

PATIENT
  Age: 56 Year
  Sex: Female

DRUGS (5)
  1. FETZIMA [Suspect]
     Active Substance: LEVOMILNACIPRAN HYDROCHLORIDE
     Indication: MOOD SWINGS
  2. FETZIMA [Suspect]
     Active Substance: LEVOMILNACIPRAN HYDROCHLORIDE
     Indication: POST-TRAUMATIC STRESS DISORDER
  3. FETZIMA [Suspect]
     Active Substance: LEVOMILNACIPRAN HYDROCHLORIDE
     Indication: DEPRESSION
  4. FETZIMA [Suspect]
     Active Substance: LEVOMILNACIPRAN HYDROCHLORIDE
     Indication: ANXIETY
     Dosage: 40 MG, UNK
     Route: 048
     Dates: start: 201612
  5. FETZIMA [Suspect]
     Active Substance: LEVOMILNACIPRAN HYDROCHLORIDE
     Indication: FIBROMYALGIA
     Dosage: 20 MG, UNK
     Route: 048
     Dates: start: 201612

REACTIONS (2)
  - Off label use [Unknown]
  - Hot flush [Recovering/Resolving]
